FAERS Safety Report 18973799 (Version 2)
Quarter: 2021Q1

REPORT INFORMATION
  Report Type: Spontaneous
  Country: GB (occurrence: GB)
  Receive Date: 20210305
  Receipt Date: 20210309
  Transmission Date: 20210420
  Serious: Yes (Other)
  Sender: FDA-Public Use
  Company Number: GB-009507513-2103GBR000623

PATIENT
  Sex: Male

DRUGS (1)
  1. JANUVIA [Suspect]
     Active Substance: SITAGLIPTIN PHOSPHATE
     Indication: TYPE 2 DIABETES MELLITUS
     Dosage: 1 TABLET, QD
     Route: 048

REACTIONS (4)
  - Nothing by mouth order [Unknown]
  - Gastrointestinal tube insertion [Unknown]
  - Dysphagia [Unknown]
  - Wrong technique in product usage process [Unknown]
